FAERS Safety Report 19850225 (Version 1)
Quarter: 2021Q3

REPORT INFORMATION
  Report Type: Spontaneous
  Country: IT (occurrence: IT)
  Receive Date: 20210917
  Receipt Date: 20210917
  Transmission Date: 20211014
  Serious: Yes (Other)
  Sender: FDA-Public Use
  Company Number: IT-PFIZER INC-202101154895

PATIENT
  Age: 49 Year
  Sex: Female

DRUGS (11)
  1. TORA?DOL [Suspect]
     Active Substance: KETOROLAC TROMETHAMINE
  2. OKI [Suspect]
     Active Substance: KETOPROFEN LYSINE
  3. FENTANYL CITRATE. [Suspect]
     Active Substance: FENTANYL CITRATE
  4. BRUFEN [Suspect]
     Active Substance: IBUPROFEN
  5. NUROFEN (P) [Suspect]
     Active Substance: IBUPROFEN
  6. MACROGOL 4000 [Suspect]
     Active Substance: POLYETHYLENE GLYCOL 4000
  7. MONURIL [Suspect]
     Active Substance: FOSFOMYCIN TROMETHAMINE
  8. OPTALIDON [IBUPROFEN] [Suspect]
     Active Substance: IBUPROFEN
  9. AUGMENTIN [Suspect]
     Active Substance: AMOXICILLIN\CLAVULANATE POTASSIUM
     Route: 048
  10. ASPIRINA [Suspect]
     Active Substance: ASPIRIN
  11. ZIRTEC [Suspect]
     Active Substance: CETIRIZINE HYDROCHLORIDE

REACTIONS (8)
  - Tongue paralysis [Unknown]
  - Dizziness [Unknown]
  - Loss of consciousness [Unknown]
  - Gait inability [Unknown]
  - Vomiting [Unknown]
  - Tachycardia [Unknown]
  - Dysentery [Unknown]
  - Coordination abnormal [Unknown]
